FAERS Safety Report 9146362 (Version 1)
Quarter: 2013Q1

REPORT INFORMATION
  Report Type: Spontaneous
  Country: US (occurrence: None)
  Receive Date: 20130219
  Receipt Date: 20130219
  Transmission Date: 20140127
  Serious: Yes (Death)
  Sender: FDA-Public Use
  Company Number: 2013-00271

PATIENT
  Age: 61 Year
  Sex: Female

DRUGS (1)
  1. METFORMIN (1000 MILLIGRAM, TABLETS) [Suspect]
     Indication: PRODUCT USED FOR UNKNOWN INDICATION
     Dosage: (200 DOSAGE FORMS, ONCE)

REACTIONS (14)
  - Completed suicide [None]
  - Overdose [None]
  - Nausea [None]
  - Vomiting [None]
  - Hypotension [None]
  - Body temperature decreased [None]
  - Respiratory failure [None]
  - Metabolic acidosis [None]
  - Unresponsive to stimuli [None]
  - Haemodialysis [None]
  - Arteriosclerosis [None]
  - Pulmonary oedema [None]
  - Emphysema [None]
  - Toxicity to various agents [None]
